FAERS Safety Report 16773370 (Version 2)
Quarter: 2024Q2

REPORT INFORMATION
  Report Type: Spontaneous
  Country: US (occurrence: US)
  Receive Date: 20190904
  Receipt Date: 20240506
  Transmission Date: 20240716
  Serious: No
  Sender: FDA-Public Use
  Company Number: US-PURDUE-USA-2019-0146880

PATIENT
  Sex: Male
  Weight: 65.77 kg

DRUGS (4)
  1. OXYCODONE HYDROCHLORIDE [Suspect]
     Active Substance: OXYCODONE HYDROCHLORIDE
     Indication: Pain management
     Dosage: 20 MILLIGRAM, QID(ONE TABLET EVERY FOUR HOURS, UP TO 4 TABLETS PER DAY)
     Route: 048
     Dates: start: 202404
  2. ACETAMINOPHEN\OXYCODONE HYDROCHLORIDE [Suspect]
     Active Substance: ACETAMINOPHEN\OXYCODONE HYDROCHLORIDE
     Indication: Pain
     Dosage: 10/325MG TABLET, UNK
     Route: 048
  3. DURAGESIC [Concomitant]
     Active Substance: FENTANYL
     Indication: Pain
     Dosage: 100 MCG, Q48H
     Route: 062
  4. DURAGESIC [Concomitant]
     Active Substance: FENTANYL
     Dosage: 50 MCG, Q48H
     Route: 062

REACTIONS (3)
  - Inadequate analgesia [Unknown]
  - Therapeutic product effect decreased [Unknown]
  - Unevaluable event [Unknown]

NARRATIVE: CASE EVENT DATE: 20240401
